FAERS Safety Report 12161978 (Version 2)
Quarter: 2016Q1

REPORT INFORMATION
  Report Type: Spontaneous
  Country: FR (occurrence: FR)
  Receive Date: 20160309
  Receipt Date: 20160311
  Transmission Date: 20160526
  Serious: Yes (Life-Threatening)
  Sender: FDA-Public Use
  Company Number: FR-009507513-1603FRA002061

PATIENT
  Age: 58 Year
  Sex: Female

DRUGS (2)
  1. TEMODAL [Suspect]
     Active Substance: TEMOZOLOMIDE
     Indication: GLIOBLASTOMA
     Dosage: UNK, UNKNOWN
     Route: 048
     Dates: start: 2011
  2. AVASTIN [Suspect]
     Active Substance: BEVACIZUMAB
     Indication: GLIOBLASTOMA
     Dosage: UNK, UNKNOWN
     Route: 042
     Dates: start: 2011

REACTIONS (1)
  - Burkitt^s leukaemia [Unknown]

NARRATIVE: CASE EVENT DATE: 201503
